FAERS Safety Report 21265695 (Version 5)
Quarter: 2023Q1

REPORT INFORMATION
  Report Type: Report from Study
  Country: US (occurrence: US)
  Receive Date: 20220829
  Receipt Date: 20230317
  Transmission Date: 20230417
  Serious: Yes (Other)
  Sender: FDA-Public Use
  Company Number: US-002147023-NVSC2022US193841

PATIENT
  Sex: Male

DRUGS (1)
  1. PROMACTA [Suspect]
     Active Substance: ELTROMBOPAG OLAMINE
     Indication: Product used for unknown indication
     Dosage: UNK
     Route: 065

REACTIONS (10)
  - Haemorrhage [Unknown]
  - Cerebral amyloid angiopathy [Unknown]
  - Cerebral haemorrhage [Unknown]
  - Immune thrombocytopenia [Unknown]
  - Sleep apnoea syndrome [Unknown]
  - Hypertension [Unknown]
  - Blood disorder [Unknown]
  - Full blood count abnormal [Unknown]
  - Platelet count increased [Unknown]
  - Platelet count decreased [Unknown]
